FAERS Safety Report 15962024 (Version 1)
Quarter: 2019Q1

REPORT INFORMATION
  Report Type: Spontaneous
  Country: US (occurrence: US)
  Receive Date: 20190123
  Receipt Date: 20190123
  Transmission Date: 20190417
  Serious: No
  Sender: FDA-Public Use
  Company Number: None

PATIENT
  Age: 44 Year
  Sex: Male

DRUGS (1)
  1. STELARA [Suspect]
     Active Substance: USTEKINUMAB
     Dates: start: 201707

REACTIONS (4)
  - Sinusitis [None]
  - Headache [None]
  - Eye infection [None]
  - Ear infection [None]

NARRATIVE: CASE EVENT DATE: 20181201
